FAERS Safety Report 14631107 (Version 1)
Quarter: 2018Q1

REPORT INFORMATION
  Report Type: Spontaneous
  Country: US (occurrence: US)
  Receive Date: 20180313
  Receipt Date: 20180313
  Transmission Date: 20180509
  Serious: No
  Sender: FDA-Public Use
  Company Number: US-TEVA-822488ACC

PATIENT
  Sex: Female

DRUGS (2)
  1. AMOXICILLIN. [Suspect]
     Active Substance: AMOXICILLIN
     Route: 065
     Dates: start: 20171031
  2. AMOXICILLIN. [Suspect]
     Active Substance: AMOXICILLIN
     Dosage: DOSE STRENGTH: 250 MG/5 ML

REACTIONS (4)
  - Abdominal distension [Unknown]
  - Pruritus [Unknown]
  - Rash [Unknown]
  - Reaction to excipient [Unknown]

NARRATIVE: CASE EVENT DATE: 20171101
